FAERS Safety Report 4763900-9 (Version None)
Quarter: 2005Q3

REPORT INFORMATION
  Report Type: 
  Country: None (occurrence: None)
  Receive Date: 20050906
  Receipt Date: 20050824
  Transmission Date: 20060218
  Serious: Yes (Life-Threatening, Hospitalization)
  Sender: FDA-Public Use
  Company Number: US-2005-017812

PATIENT
  Age: 58 Year
  Sex: Male
  Weight: 108 kg

DRUGS (1)
  1. LEUKINE [Suspect]
     Indication: PROSTATE CANCER
     Dosage: 250 UG, 3X/WEEK M-W-F, SUBCUTANEOUS
     Route: 058
     Dates: start: 20050422, end: 20050816

REACTIONS (1)
  - PULMONARY EMBOLISM [None]
